FAERS Safety Report 4435280-X (Version None)
Quarter: 2004Q3

REPORT INFORMATION
  Report Type: 
  Country: None (occurrence: None)
  Receive Date: 20040826
  Receipt Date: 20040809
  Transmission Date: 20050211
  Serious: Yes (Other)
  Sender: FDA-Public Use
  Company Number: B0341756A

PATIENT
  Sex: Male

DRUGS (7)
  1. EPIVIR [Suspect]
     Indication: SYSTEMIC ANTIVIRAL TREATMENT
  2. ZIAGEN [Suspect]
     Indication: SYSTEMIC ANTIVIRAL TREATMENT
  3. AGENERASE [Suspect]
     Indication: SYSTEMIC ANTIVIRAL TREATMENT
  4. RETROVIR [Suspect]
     Indication: SYSTEMIC ANTIVIRAL TREATMENT
  5. DIDANOSINE [Suspect]
     Indication: SYSTEMIC ANTIVIRAL TREATMENT
  6. LOPINAVIR + RITONAVIR (LOPINAVIR + RITONAVIR) [Suspect]
     Indication: SYSTEMIC ANTIVIRAL TREATMENT
  7. MULTI-VITAMIN [Concomitant]

REACTIONS (10)
  - ALANINE AMINOTRANSFERASE INCREASED [None]
  - ASPARTATE AMINOTRANSFERASE INCREASED [None]
  - BLOOD ALKALINE PHOSPHATASE INCREASED [None]
  - BLOOD BILIRUBIN INCREASED [None]
  - BLOOD HIV RNA INCREASED [None]
  - HEPATIC FIBROSIS [None]
  - HEPATIC NECROSIS [None]
  - HEPATIC STEATOSIS [None]
  - HEPATOTOXICITY [None]
  - HYPOAESTHESIA [None]
